FAERS Safety Report 25189598 (Version 1)
Quarter: 2025Q2

REPORT INFORMATION
  Report Type: Spontaneous
  Country: US (occurrence: US)
  Receive Date: 20250411
  Receipt Date: 20250411
  Transmission Date: 20250716
  Serious: No
  Sender: CALLIDITAS THERAPEUTICS
  Company Number: US-Calliditas-2025CAL00910

PATIENT
  Age: 75 Year
  Sex: Male

DRUGS (16)
  1. TARPEYO [Suspect]
     Active Substance: BUDESONIDE
     Indication: IgA nephropathy
     Route: 048
     Dates: start: 20250320
  2. ASPIRIN [Concomitant]
     Active Substance: ASPIRIN
  3. ATORVASTATIN [Concomitant]
     Active Substance: ATORVASTATIN
  4. CITALOPRAM [Concomitant]
     Active Substance: CITALOPRAM
  5. ELIQUIS [Concomitant]
     Active Substance: APIXABAN
  6. EPLERENONE [Concomitant]
     Active Substance: EPLERENONE
  7. TAMSULOSIN [Concomitant]
     Active Substance: TAMSULOSIN
  8. ESOMEPRAZOLE [Concomitant]
     Active Substance: ESOMEPRAZOLE
  9. FARXIGA [Concomitant]
     Active Substance: DAPAGLIFLOZIN PROPANEDIOL
  10. FISH OIL [Concomitant]
     Active Substance: FISH OIL
  11. LOSARTAN [Concomitant]
     Active Substance: LOSARTAN
  12. LISINOPRIL [Concomitant]
     Active Substance: LISINOPRIL
  13. POTASSIUM [Concomitant]
     Active Substance: POTASSIUM
  14. VITAMIN B12 [Concomitant]
     Active Substance: CYANOCOBALAMIN
  15. TYLENOL [Concomitant]
     Active Substance: ACETAMINOPHEN
  16. BISOPROLOL [Concomitant]
     Active Substance: BISOPROLOL

REACTIONS (2)
  - Oedema peripheral [Not Recovered/Not Resolved]
  - Oedema [Not Recovered/Not Resolved]

NARRATIVE: CASE EVENT DATE: 20250329
